FAERS Safety Report 4605159-9 (Version None)
Quarter: 2005Q2

REPORT INFORMATION
  Report Type: 
  Country: None (occurrence: None)
  Receive Date: 20050222
  Receipt Date: 20041213
  Transmission Date: 20051028
  Serious: Yes (Hospitalization)
  Sender: FDA-Public Use
  Company Number: 1329

PATIENT
  Age: 15 Year
  Sex: Male
  Weight: 56.246 kg

DRUGS (3)
  1. AMNESTEEM [Suspect]
     Indication: ACNE
     Dosage: SEE IMAGE
     Route: 048
     Dates: start: 20040914, end: 20041026
  2. AMNESTEEM [Suspect]
     Indication: ACNE
     Dosage: SEE IMAGE
     Route: 048
     Dates: start: 20041027, end: 20041130
  3. ZYRTEC [Concomitant]

REACTIONS (3)
  - ALANINE AMINOTRANSFERASE INCREASED [None]
  - ASPARTATE AMINOTRANSFERASE INCREASED [None]
  - BLOOD CREATINE PHOSPHOKINASE INCREASED [None]
